FAERS Safety Report 4685875-3 (Version None)
Quarter: 2005Q2

REPORT INFORMATION
  Report Type: 
  Country: None (occurrence: None)
  Receive Date: 20050606
  Receipt Date: 20050606
  Transmission Date: 20051028
  Serious: Yes (Other)
  Sender: FDA-Public Use
  Company Number: None

PATIENT
  Sex: Male
  Weight: 99 kg

DRUGS (4)
  1. IRINOTECAN 180 MG/M2 IV OVER 120 MINUTES ON DAY 1, EVERY 2 WEEKS X 12 [Suspect]
     Indication: COLON CANCER
     Dosage: 180 MG/M2 IV OVER 120 MINUTES ON DAY 1, EVERY 2 WEEKS X 12 CYCLES
     Route: 042
     Dates: start: 20050418
  2. LEUCOVORIN 400 MG/M2 IV OVER 120 MINUTES ON DAY 1, EVERY 2 WEEKS X 12 [Suspect]
     Indication: COLON CANCER
     Dosage: 400 MG/M2 IV OVER 120 MINUTES ON DAY 1, EVERY 2 WEEKS X 12 CYCLES
     Route: 042
  3. FLUOROURACIL [Suspect]
     Indication: COLON CANCER
     Dosage: 400 MG/M2 IV PUSH ON DAY 1 FOLLOWED BY 2400 MG/M2 CIV OVER 46-48 HOURS, EVERY 2 WEEKS X 12 CYCLES
     Route: 042
  4. COUMADIN [Concomitant]

REACTIONS (2)
  - PLEURAL EFFUSION [None]
  - PULMONARY EMBOLISM [None]
